FAERS Safety Report 14351716 (Version 1)
Quarter: 2018Q1

REPORT INFORMATION
  Report Type: Spontaneous
  Country: FR (occurrence: FR)
  Receive Date: 20180104
  Receipt Date: 20180104
  Transmission Date: 20180509
  Serious: Yes (Hospitalization)
  Sender: FDA-Public Use
  Company Number: FR-CELGENEUS-FRA-20171207354

PATIENT
  Age: 78 Year
  Sex: Female
  Weight: 53 kg

DRUGS (2)
  1. ZAVEDOS [Suspect]
     Active Substance: IDARUBICIN
     Indication: MYELOID LEUKAEMIA
     Route: 042
     Dates: start: 201703, end: 20170503
  2. AZACITIDINE INJECTABLE [Suspect]
     Active Substance: AZACITIDINE
     Indication: MYELOID LEUKAEMIA
     Dosage: 525 MILLIGRAM/SQ. METER
     Route: 041
     Dates: start: 201703, end: 20170503

REACTIONS (1)
  - Organising pneumonia [Recovered/Resolved]

NARRATIVE: CASE EVENT DATE: 20170428
